FAERS Safety Report 8287255-0 (Version None)
Quarter: 2012Q2

REPORT INFORMATION
  Report Type: 
  Country: None (occurrence: None)
  Receive Date: 20120411
  Receipt Date: 20120330
  Transmission Date: 20120825
  Serious: Yes (Other)
  Sender: FDA-Public Use
  Company Number: JPI-P-020691

PATIENT
  Age: 40 Year
  Sex: Male
  Weight: 65.7716 kg

DRUGS (2)
  1. XYREM [Suspect]
     Indication: NARCOLEPSY
     Dosage: (2 IN 1 D), ORAL 9 GM (4.5 GM, 2 IN 1 D), ORAL
     Route: 048
     Dates: start: 20040227
  2. MULTIPLE UNSPECIFIED MEDICATIONS [Concomitant]

REACTIONS (7)
  - HERNIA REPAIR [None]
  - IMPAIRED HEALING [None]
  - PAIN [None]
  - EPIDIDYMITIS [None]
  - TOOTHACHE [None]
  - BACTERIAL INFECTION [None]
  - FALL [None]
